FAERS Safety Report 5851527-7 (Version None)
Quarter: 2008Q3

REPORT INFORMATION
  Report Type: 
  Country: None (occurrence: None)
  Receive Date: 20080820
  Receipt Date: 20080811
  Transmission Date: 20090109
  Serious: Yes (Other)
  Sender: FDA-Public Use
  Company Number: US-ELI_LILLY_AND_COMPANY-US200808002112

PATIENT
  Sex: Male

DRUGS (5)
  1. CYMBALTA [Suspect]
     Indication: DEPRESSION
     Dosage: UNK, UNK
     Dates: start: 20070601, end: 20070101
  2. SYNTHROID [Concomitant]
  3. NORVASC [Concomitant]
  4. DARVOCET [Concomitant]
  5. CELEBREX [Concomitant]

REACTIONS (5)
  - ANGER [None]
  - CEREBROVASCULAR ACCIDENT [None]
  - DEPRESSION [None]
  - HYPOTONIA [None]
  - WEIGHT INCREASED [None]
